FAERS Safety Report 15423084 (Version 1)
Quarter: 2018Q3

REPORT INFORMATION
  Report Type: Spontaneous
  Country: US (occurrence: US)
  Receive Date: 20180925
  Receipt Date: 20180925
  Transmission Date: 20181010
  Serious: Yes (Other)
  Sender: FDA-Public Use
  Company Number: US-ASTRAZENECA-2018SF20245

PATIENT
  Sex: Male
  Weight: 61.2 kg

DRUGS (8)
  1. ATORVASTATIN [Concomitant]
     Active Substance: ATORVASTATIN
     Route: 048
     Dates: start: 2015
  2. MEDICAL MARIJUANA [Concomitant]
     Active Substance: CANNABIS SATIVA SUBSP. INDICA TOP
     Indication: SLEEP DISORDER
     Dosage: AS REQUIRED
     Route: 048
  3. BRILINTA [Suspect]
     Active Substance: TICAGRELOR
     Indication: MYOCARDIAL INFARCTION
     Route: 048
     Dates: start: 2015
  4. BRILINTA [Suspect]
     Active Substance: TICAGRELOR
     Indication: STENT PLACEMENT
     Route: 048
     Dates: start: 2015
  5. LISINOPRIL. [Suspect]
     Active Substance: LISINOPRIL
     Route: 048
     Dates: start: 2015
  6. CARVEDILOL. [Concomitant]
     Active Substance: CARVEDILOL
     Route: 048
     Dates: start: 2015
  7. MEDICAL MARIJUANA [Concomitant]
     Active Substance: CANNABIS SATIVA SUBSP. INDICA TOP
     Indication: DYSPEPSIA
     Dosage: AS REQUIRED
     Route: 048
  8. ASPIRIN. [Concomitant]
     Active Substance: ASPIRIN
     Indication: PROPHYLAXIS
     Route: 048
     Dates: start: 2015

REACTIONS (8)
  - Temperature intolerance [Unknown]
  - Myocardial infarction [Recovered/Resolved with Sequelae]
  - Complication associated with device [Unknown]
  - Asthenia [Not Recovered/Not Resolved]
  - Fall [Unknown]
  - Hypotension [Unknown]
  - Vertigo [Unknown]
  - Drug dispensing error [Unknown]
